FAERS Safety Report 9337801 (Version 2)
Quarter: 2013Q4

REPORT INFORMATION
  Report Type: Report from Study
  Country: JP (occurrence: JP)
  Receive Date: 20130607
  Receipt Date: 20131228
  Transmission Date: 20140711
  Serious: Yes (Hospitalization)
  Sender: FDA-Public Use
  Company Number: JP-009507513-1306JPN003395

PATIENT
  Age: 39 Year
  Sex: Female
  Weight: 68 kg

DRUGS (13)
  1. REBETOL [Suspect]
     Indication: CHRONIC HEPATITIS C
     Dosage: 400 MG, BID
     Route: 048
     Dates: start: 20120213, end: 20120727
  2. FERON [Suspect]
     Indication: CHRONIC HEPATITIS C
     Dosage: 3 MILLION-BILLION UNIT, BID
     Route: 042
     Dates: start: 20120213, end: 20120304
  3. FERON [Suspect]
     Dosage: 6 MILLION-BILLION UNIT
     Route: 042
     Dates: start: 20120305, end: 20120311
  4. FERON [Suspect]
     Dosage: 6 MILLION-BILLION UNIT, THE THIRD/WEEK
     Route: 042
     Dates: start: 20120312, end: 20120727
  5. MYSLEE [Concomitant]
     Indication: INSOMNIA
     Dosage: 10 MG QD, DIVIDED DOSE FREQUENCY UNKNOWN
     Route: 048
     Dates: start: 20120220
  6. ROHYPNOL [Concomitant]
     Indication: INSOMNIA
     Dosage: 2 MG, QD,DIVIDED DOSE FREQUENCY UNKNOWN
     Route: 048
     Dates: start: 20120302
  7. AMOBAN [Concomitant]
     Indication: INSOMNIA
     Dosage: 10 MG, QD,DIVIDED DOSE FREQUENCY UNKNOWN
     Route: 048
     Dates: start: 20120302
  8. LOXONIN [Concomitant]
     Indication: HEADACHE
     Dosage: 60 MG, ONLY ON THE INTERFERON BETA ADMINISTERING DAY
     Route: 048
     Dates: start: 20120302, end: 20120727
  9. ROZEREM [Concomitant]
     Indication: INSOMNIA
     Dosage: 8 MG QD,DIVIDED DOSE FREQUENCY UNKNOWN8 MG, QD
     Route: 048
     Dates: start: 20120309
  10. RIVOTRIL [Concomitant]
     Indication: HEADACHE
     Dosage: 0.5 MG, QD,DIVIDED DOSE FREQUENCY UNKNOWN
     Route: 048
     Dates: start: 20120309, end: 20120727
  11. LUVOX [Concomitant]
     Indication: INSOMNIA
     Dosage: 25 MG, QD,DIVIDED DOSE FREQUENCY UNKNOWN
     Route: 048
     Dates: start: 20120329
  12. DEPAKENE [Concomitant]
     Indication: DEPRESSION
     Dosage: 400 MG, QD,DIVIDED DOSE FREQUENCY UNKNOWN
     Dates: start: 20120524
  13. RISPERIDONE [Concomitant]
     Indication: DEPRESSION
     Dosage: 1 MG, QD,DIVIDED DOSE FREQUENCY UNKNOWN
     Dates: start: 20120601

REACTIONS (7)
  - Depression [Recovering/Resolving]
  - Depression [Recovering/Resolving]
  - Insomnia [Recovering/Resolving]
  - Pyrexia [Recovering/Resolving]
  - Headache [Recovered/Resolved]
  - Headache [Recovered/Resolved]
  - Carpal tunnel syndrome [Recovered/Resolved]
